FAERS Safety Report 8069836-2 (Version None)
Quarter: 2012Q1

REPORT INFORMATION
  Report Type: 
  Country: None (occurrence: None)
  Receive Date: 20120125
  Receipt Date: 20120125
  Transmission Date: 20120608
  Serious: No
  Sender: FDA-Public Use
  Company Number: None

PATIENT
  Age: 22 Year
  Sex: Female
  Weight: 57.152 kg

DRUGS (1)
  1. CLARAVIS [Suspect]
     Indication: ACNE
     Dosage: 3
     Route: 048
     Dates: start: 20111017, end: 20120118

REACTIONS (6)
  - SKIN DISORDER [None]
  - EAR INFECTION [None]
  - SKIN INFECTION [None]
  - AURICULAR SWELLING [None]
  - RASH [None]
  - BLISTER [None]
